FAERS Safety Report 7338463-4 (Version None)
Quarter: 2011Q1

REPORT INFORMATION
  Report Type: 
  Country: None (occurrence: None)
  Receive Date: 20110308
  Receipt Date: 20110223
  Transmission Date: 20110831
  Serious: Yes (Hospitalization)
  Sender: FDA-Public Use
  Company Number: FR-ELI_LILLY_AND_COMPANY-FR201103001314

PATIENT
  Sex: Female

DRUGS (4)
  1. PYOSTACINE [Concomitant]
     Indication: SKIN LESION
     Dates: start: 20090130, end: 20090202
  2. CYMBALTA [Suspect]
     Route: 048
     Dates: start: 20080801
  3. CORTANCYL [Concomitant]
     Dosage: 5 MG, DAILY (1/D)
     Dates: start: 20080101, end: 20090120
  4. FERRIPROX [Concomitant]

REACTIONS (6)
  - SKIN LESION [None]
  - C-REACTIVE PROTEIN INCREASED [None]
  - LYMPHOCYTE COUNT DECREASED [None]
  - WHITE BLOOD CELL COUNT INCREASED [None]
  - HAEMOGLOBIN DECREASED [None]
  - VASCULAR PURPURA [None]
